FAERS Safety Report 13179187 (Version 10)
Quarter: 2017Q4

REPORT INFORMATION
  Report Type: Spontaneous
  Country: US (occurrence: US)
  Receive Date: 20170202
  Receipt Date: 20171101
  Transmission Date: 20180320
  Serious: Yes (Congenital Anomaly, Other)
  Sender: FDA-Public Use
  Company Number: PHEH2017US003351

PATIENT
  Sex: Male

DRUGS (2)
  1. ZOFRAN [Suspect]
     Active Substance: ONDANSETRON HYDROCHLORIDE
     Indication: FOETAL EXPOSURE DURING PREGNANCY
     Route: 064
  2. ZOFRAN [Suspect]
     Active Substance: ONDANSETRON HYDROCHLORIDE
     Indication: FOETAL EXPOSURE DURING PREGNANCY
     Dosage: MOTHER DOSE: 8 MG, Q8H
     Route: 064

REACTIONS (42)
  - Anomalous pulmonary venous connection [Unknown]
  - Coronary artery disease [Unknown]
  - Teething [Unknown]
  - Acute sinusitis [Unknown]
  - Pulmonary congestion [Unknown]
  - Tricuspid valve incompetence [Unknown]
  - Croup infectious [Unknown]
  - Pulmonary oedema [Unknown]
  - Gastrooesophageal reflux disease [Unknown]
  - Otitis media acute [Unknown]
  - Abdominal pain [Unknown]
  - Poor feeding infant [Unknown]
  - Conjunctivitis [Unknown]
  - Pharyngitis [Unknown]
  - Atrial septal defect [Unknown]
  - Inflammatory bowel disease [Unknown]
  - Upper respiratory tract infection [Unknown]
  - Cardiomegaly [Unknown]
  - Asthma [Unknown]
  - Bronchospasm [Unknown]
  - Lactose intolerance [Unknown]
  - Atelectasis [Unknown]
  - Bronchial hyperreactivity [Unknown]
  - Bronchiolitis [Unknown]
  - Foetal exposure during pregnancy [Unknown]
  - Gastric dilatation [Unknown]
  - Eosinophilic oesophagitis [Unknown]
  - Cough [Unknown]
  - Postpericardiotomy syndrome [Unknown]
  - Right ventricular hypertrophy [Unknown]
  - Right ventricular dilatation [Unknown]
  - Dermatitis diaper [Unknown]
  - Hydrocele [Unknown]
  - Superior vena cava stenosis [Unknown]
  - Ear infection [Unknown]
  - Cardiac murmur [Unknown]
  - Coxsackie viral infection [Unknown]
  - Heart disease congenital [Unknown]
  - Pulmonary valve incompetence [Unknown]
  - Eustachian tube dysfunction [Unknown]
  - Anaemia [Unknown]
  - Dacryostenosis acquired [Unknown]
